FAERS Safety Report 19738301 (Version 1)
Quarter: 2021Q3

REPORT INFORMATION
  Report Type: Other
  Country: US (occurrence: US)
  Receive Date: 20210824
  Receipt Date: 20210824
  Transmission Date: 20211014
  Serious: Yes (Death, Other)
  Sender: FDA-Public Use
  Company Number: US-ROCHE-2896790

PATIENT
  Age: 64 Year

DRUGS (1)
  1. RITUXIMAB. [Suspect]
     Active Substance: RITUXIMAB
     Indication: MYASTHENIA GRAVIS
     Route: 065

REACTIONS (4)
  - Cardiac arrest [Fatal]
  - Lymphopenia [Unknown]
  - Multiple organ dysfunction syndrome [Unknown]
  - Systemic inflammatory response syndrome [Unknown]
